FAERS Safety Report 13828274 (Version 1)
Quarter: 2017Q3

REPORT INFORMATION
  Report Type: Report from Study
  Country: BR (occurrence: BR)
  Receive Date: 20170803
  Receipt Date: 20170803
  Transmission Date: 20171127
  Serious: Yes (Hospitalization)
  Sender: FDA-Public Use
  Company Number: BR-UCBSA-2017030134

PATIENT
  Sex: Male

DRUGS (3)
  1. LEVETIRACETAM. [Suspect]
     Active Substance: LEVETIRACETAM
     Indication: EPILEPSY
     Dosage: UNK , 2X/DAY (BID)
     Route: 048
     Dates: start: 2016
  2. VIMPAT [Suspect]
     Active Substance: LACOSAMIDE
     Indication: EPILEPSY
     Dosage: 3 ML, 2X/DAY (BID)
     Route: 048
     Dates: start: 201705, end: 2017
  3. VIMPAT [Suspect]
     Active Substance: LACOSAMIDE
     Dosage: UNK
     Dates: start: 2017

REACTIONS (7)
  - Nervousness [Unknown]
  - Sedation [Unknown]
  - Pneumonia [Unknown]
  - Decreased appetite [Unknown]
  - Off label use [Unknown]
  - Dehydration [Unknown]
  - Crying [Unknown]

NARRATIVE: CASE EVENT DATE: 2016
